FAERS Safety Report 9303037 (Version 1)
Quarter: 2013Q2

REPORT INFORMATION
  Report Type: Spontaneous
  Country: CN (occurrence: CN)
  Receive Date: 20130522
  Receipt Date: 20130522
  Transmission Date: 20140414
  Serious: Yes (Hospitalization)
  Sender: FDA-Public Use
  Company Number: CN-ABBOTT-13X-035-1092451-00

PATIENT
  Age: 40 Year
  Sex: Female

DRUGS (3)
  1. DEPAKINE [Suspect]
     Indication: EPILEPSY
     Route: 065
     Dates: start: 20120227
  2. LAMOTRIGINE [Concomitant]
     Indication: PRODUCT USED FOR UNKNOWN INDICATION
     Dates: start: 20120227
  3. ANTIEPILEPTICS [Concomitant]
     Indication: PRODUCT USED FOR UNKNOWN INDICATION

REACTIONS (11)
  - Eye irritation [Recovering/Resolving]
  - Erythema multiforme [Recovering/Resolving]
  - Pyrexia [Recovering/Resolving]
  - Blister [Recovering/Resolving]
  - Pain [Recovering/Resolving]
  - Pruritus [Recovering/Resolving]
  - Skin lesion [Recovering/Resolving]
  - Dry mouth [Recovering/Resolving]
  - Photophobia [Recovering/Resolving]
  - Skin exfoliation [Recovering/Resolving]
  - Genital erosion [Recovering/Resolving]
